FAERS Safety Report 26161058 (Version 1)
Quarter: 2025Q4

REPORT INFORMATION
  Report Type: Spontaneous
  Country: US (occurrence: US)
  Receive Date: 20251216
  Receipt Date: 20251216
  Transmission Date: 20260118
  Serious: No
  Sender: ALVOGEN
  Company Number: US-ALVOGEN-2024095982

PATIENT
  Age: 81 Year
  Sex: Male

DRUGS (1)
  1. FENTANYL [Suspect]
     Active Substance: FENTANYL
     Indication: Back pain
     Dosage: FOR SEVEN MONTHS?EXPIRY DATE: UU-APR-2027?12MCG/H 5CT
     Route: 062
     Dates: start: 2024

REACTIONS (3)
  - Device malfunction [Unknown]
  - Device adhesion issue [Unknown]
  - Device defective [Unknown]

NARRATIVE: CASE EVENT DATE: 20240101
